FAERS Safety Report 24263206 (Version 2)
Quarter: 2024Q3

REPORT INFORMATION
  Report Type: Spontaneous
  Country: US (occurrence: US)
  Receive Date: 20240829
  Receipt Date: 20240830
  Transmission Date: 20241017
  Serious: No
  Sender: ROCHE
  Company Number: US-ROCHE-10000067954

PATIENT
  Age: 60 Year
  Sex: Male
  Weight: 66.22 kg

DRUGS (2)
  1. EVRYSDI [Suspect]
     Active Substance: RISDIPLAM
     Indication: Spinal muscular atrophy
     Dosage: STRENGTH 0.75 MG / 1 ML
     Route: 048
     Dates: start: 20240822
  2. EVRYSDI [Suspect]
     Active Substance: RISDIPLAM
     Dosage: 100 ML BOTTLE
     Route: 048

REACTIONS (1)
  - Blood glucose decreased [Not Recovered/Not Resolved]

NARRATIVE: CASE EVENT DATE: 20240826
